FAERS Safety Report 5052477-9 (Version None)
Quarter: 2006Q3

REPORT INFORMATION
  Report Type: 
  Country: None (occurrence: None)
  Receive Date: 20060712
  Receipt Date: 20060712
  Transmission Date: 20061208
  Serious: Yes (Hospitalization)
  Sender: FDA-Public Use
  Company Number: None

PATIENT
  Age: 66 Year
  Weight: 89.8122 kg

DRUGS (22)
  1. LYRICA [Suspect]
     Indication: DIABETIC NEUROPATHY
     Dosage: 75MG   BID   PO
     Route: 048
     Dates: start: 20060303, end: 20060707
  2. FLUTICASONE INHALER [Concomitant]
  3. ALBUTEROL SPIROS [Concomitant]
  4. ASPIRIN [Concomitant]
  5. CINACACET [Concomitant]
  6. DOCUSATE SODIUM [Concomitant]
  7. EPO [Concomitant]
  8. FUROSEMIDE [Concomitant]
  9. GANCICLOVIR [Concomitant]
  10. GUAIFENESIN [Concomitant]
  11. LANSOPRAZOLE [Concomitant]
  12. MAGNESIUM SULFATE [Concomitant]
  13. METOPROLOL [Concomitant]
  14. M.V.I. [Concomitant]
  15. NEPHROCAPS [Concomitant]
  16. LYRICA [Concomitant]
  17. PREDNISONE [Concomitant]
  18. SENNA [Concomitant]
  19. TACROLIMUS [Concomitant]
  20. KAYEXALATE [Concomitant]
  21. SODIUM BICARBONATE [Concomitant]
  22. HEPARIN [Concomitant]

REACTIONS (8)
  - CYTOMEGALOVIRUS ANTIGEN POSITIVE [None]
  - CYTOMEGALOVIRUS INFECTION [None]
  - DYSPNOEA EXERTIONAL [None]
  - PNEUMONIA PRIMARY ATYPICAL [None]
  - PNEUMONITIS [None]
  - PULMONARY OEDEMA [None]
  - PYREXIA [None]
  - URINARY TRACT INFECTION [None]
